FAERS Safety Report 9893196 (Version 2)
Quarter: 2014Q1

REPORT INFORMATION
  Report Type: Report from Study
  Country: US (occurrence: US)
  Receive Date: 20140213
  Receipt Date: 20140327
  Transmission Date: 20141002
  Serious: Yes (Hospitalization)
  Sender: FDA-Public Use
  Company Number: US-US-EMD SERONO, INC.-7267807

PATIENT
  Sex: Female

DRUGS (2)
  1. REBIF [Suspect]
     Indication: MULTIPLE SCLEROSIS
     Route: 058
     Dates: start: 20080306
  2. REBIF [Suspect]
     Route: 058

REACTIONS (4)
  - Colitis ulcerative [Recovered/Resolved]
  - Portal vein thrombosis [Recovered/Resolved]
  - Post procedural complication [Recovered/Resolved]
  - Decubitus ulcer [Recovered/Resolved]
